FAERS Safety Report 9641886 (Version 2)
Quarter: 2013Q4

REPORT INFORMATION
  Report Type: Report from Study
  Country: US (occurrence: US)
  Receive Date: 20131023
  Receipt Date: 20131101
  Transmission Date: 20140711
  Serious: Yes (Other)
  Sender: FDA-Public Use
  Company Number: US-ALEXION-A201302811

PATIENT
  Age: 18 Year
  Sex: Male
  Weight: 75.1 kg

DRUGS (9)
  1. SOLIRIS [Suspect]
     Indication: DYSPNOEA PAROXYSMAL NOCTURNAL
     Dosage: UNK
     Route: 042
     Dates: start: 20120705
  2. SOLIRIS [Suspect]
     Dosage: 900 MG, Q2W
     Route: 042
  3. BACITRACIN [Concomitant]
     Dosage: UNK
  4. MAGNESIUM [Concomitant]
     Dosage: 250 MG, QD
  5. DAPSONE [Concomitant]
     Dosage: 100 MG, QD
  6. FLUCONAZOLE [Concomitant]
     Dosage: 400 MG, QD
  7. NEUPOGEN [Concomitant]
     Dosage: UNK
     Dates: end: 201306
  8. OXYCODONE [Concomitant]
     Dosage: UNK
  9. PENICILLIN [Concomitant]
     Dosage: UNK

REACTIONS (1)
  - Platelet count decreased [Recovered/Resolved]
